FAERS Safety Report 12140854 (Version 3)
Quarter: 2016Q1

REPORT INFORMATION
  Report Type: Spontaneous
  Country: CN (occurrence: CN)
  Receive Date: 20160303
  Receipt Date: 20160317
  Transmission Date: 20160526
  Serious: Yes (Hospitalization, Other)
  Sender: FDA-Public Use
  Company Number: CN-VIIV HEALTHCARE LIMITED-CN2016GSK027234

PATIENT
  Age: 50 Year
  Sex: Male
  Weight: 90 kg

DRUGS (2)
  1. HEPTODIN [Suspect]
     Active Substance: LAMIVUDINE
     Indication: HEPATITIS B
     Dosage: 1 DF, QD
     Route: 048
     Dates: start: 2006, end: 2007
  2. HEPSERA [Suspect]
     Active Substance: ADEFOVIR DIPIVOXIL
     Indication: HEPATIC FIBROSIS
     Dosage: 1 DF, QD
     Route: 048
     Dates: start: 201507

REACTIONS (4)
  - Hepatitis B DNA increased [Unknown]
  - Hepatic fibrosis [Not Recovered/Not Resolved]
  - Skin discolouration [Not Recovered/Not Resolved]
  - Off label use [Unknown]

NARRATIVE: CASE EVENT DATE: 201507
